FAERS Safety Report 12168104 (Version 1)
Quarter: 2016Q1

REPORT INFORMATION
  Report Type: Spontaneous
  Country: US (occurrence: None)
  Receive Date: 20160309
  Receipt Date: 20160309
  Transmission Date: 20160526
  Serious: No
  Sender: FDA-Public Use
  Company Number: None

PATIENT
  Age: 54 Year
  Sex: Female

DRUGS (2)
  1. CAPECITABINE 500MG TAB TEVA [Suspect]
     Active Substance: CAPECITABINE
     Indication: NEOPLASM MALIGNANT
     Dosage: 3 TABS BID PO
     Route: 048
     Dates: start: 201512, end: 201603
  2. TYKERB [Suspect]
     Active Substance: LAPATINIB DITOSYLATE
     Indication: NEOPLASM MALIGNANT
     Dosage: 5 TABS DAILY PO
     Route: 048
     Dates: start: 201512, end: 201603

REACTIONS (2)
  - Hypophagia [None]
  - Stomatitis [None]

NARRATIVE: CASE EVENT DATE: 20160308
